FAERS Safety Report 24584974 (Version 1)
Quarter: 2024Q4

REPORT INFORMATION
  Report Type: Spontaneous
  Country: IN (occurrence: IN)
  Receive Date: 20241106
  Receipt Date: 20241106
  Transmission Date: 20250114
  Serious: Yes (Other)
  Sender: FRESENIUS KABI
  Company Number: IN-FreseniusKabi-FK202416506

PATIENT
  Age: 65 Year
  Sex: Female

DRUGS (3)
  1. OXALIPLATIN [Suspect]
     Active Substance: OXALIPLATIN
     Indication: Rectal cancer
     Dosage: OVER 2 H ON DAY 1 OF 3 WEEKLY REGIMENS?FORM OF ADMINISTRATION-INFUSION
     Route: 042
  2. OXALIPLATIN [Suspect]
     Active Substance: OXALIPLATIN
     Dosage: OVER 2 H ON DAY 1 OF 3 WEEKLY REGIMENS?FOA-INFUSION
     Route: 042
  3. CAPECITABINE [Concomitant]
     Active Substance: CAPECITABINE
     Indication: Rectal cancer
     Dosage: FOA-PO

REACTIONS (2)
  - Neuropathy peripheral [Recovered/Resolved]
  - Transient ischaemic attack [Recovered/Resolved]
